FAERS Safety Report 12723822 (Version 2)
Quarter: 2016Q3

REPORT INFORMATION
  Report Type: Report from Study
  Country: BE (occurrence: BE)
  Receive Date: 20160908
  Receipt Date: 20160922
  Transmission Date: 20161109
  Serious: Yes (Death)
  Sender: FDA-Public Use
  Company Number: PHHY2016BE123511

PATIENT
  Age: 63 Year
  Sex: Male

DRUGS (1)
  1. SANDOSTATIN LAR DEPOT [Suspect]
     Active Substance: OCTREOTIDE ACETATE
     Indication: NEUROENDOCRINE TUMOUR
     Dosage: 30 MG, UNK
     Route: 030
     Dates: end: 20160831

REACTIONS (1)
  - Death [Fatal]

NARRATIVE: CASE EVENT DATE: 20160906
